FAERS Safety Report 15692469 (Version 1)
Quarter: 2018Q4

REPORT INFORMATION
  Report Type: Spontaneous
  Country: US (occurrence: US)
  Receive Date: 20181206
  Receipt Date: 20181206
  Transmission Date: 20190205
  Serious: No
  Sender: FDA-Public Use
  Company Number: US-PURDUE-USA-2017-0142099

PATIENT
  Age: 36 Year
  Sex: Female

DRUGS (4)
  1. HYSINGLA ER [Suspect]
     Active Substance: HYDROCODONE BITARTRATE
     Indication: FRACTURE
     Dosage: 20 MG, Q24H
     Route: 048
     Dates: start: 20171211
  2. LYRICA [Concomitant]
     Active Substance: PREGABALIN
     Indication: PRODUCT USED FOR UNKNOWN INDICATION
  3. HYSINGLA ER [Suspect]
     Active Substance: HYDROCODONE BITARTRATE
     Indication: BACK PAIN
     Dosage: 2 X 20 MG, Q24H
     Route: 048
  4. PHENERGAN [Concomitant]
     Active Substance: PROMETHAZINE HYDROCHLORIDE
     Indication: VOMITING
     Route: 048

REACTIONS (5)
  - Abdominal pain [Recovered/Resolved]
  - Malabsorption [Unknown]
  - Drug ineffective [Unknown]
  - Back pain [Unknown]
  - Nausea [Recovered/Resolved]
